FAERS Safety Report 17845252 (Version 6)
Quarter: 2021Q2

REPORT INFORMATION
  Report Type: Report from Study
  Country: US (occurrence: US)
  Receive Date: 20200601
  Receipt Date: 20210616
  Transmission Date: 20210717
  Serious: No
  Sender: FDA-Public Use
  Company Number: NVSC2020US148737

PATIENT
  Sex: Female

DRUGS (3)
  1. MAYZENT [Suspect]
     Active Substance: SIPONIMOD
     Indication: MULTIPLE SCLEROSIS
     Dosage: 2 MG
     Route: 065
  2. MAYZENT [Suspect]
     Active Substance: SIPONIMOD
     Dosage: 2 MG, QD
     Route: 048
     Dates: start: 20210115
  3. MAYZENT [Suspect]
     Active Substance: SIPONIMOD
     Dosage: 1 MG, QD
     Route: 048

REACTIONS (9)
  - Malaise [Unknown]
  - Muscle spasms [Unknown]
  - Crying [Unknown]
  - Condition aggravated [Unknown]
  - Peroneal nerve palsy [Unknown]
  - White blood cell count decreased [Unknown]
  - Wrong technique in product usage process [Unknown]
  - Erythema [Unknown]
  - Musculoskeletal discomfort [Unknown]
